FAERS Safety Report 6290692-7 (Version None)
Quarter: 2009Q3

REPORT INFORMATION
  Report Type: 
  Country: None (occurrence: None)
  Receive Date: 20090730
  Receipt Date: 20090723
  Transmission Date: 20100115
  Serious: Yes (Hospitalization)
  Sender: FDA-Public Use
  Company Number: FR-SP-2009-01935

PATIENT
  Age: 83 Year
  Sex: Male

DRUGS (6)
  1. IMMUCYST [Suspect]
     Indication: BLADDER CANCER
     Route: 043
     Dates: start: 20080801
  2. ZYLORIC [Concomitant]
     Route: 048
  3. ZOCOR [Concomitant]
     Route: 048
  4. CORDARONE [Concomitant]
     Route: 048
  5. AVODART [Concomitant]
     Route: 048
  6. CONTRAMAL [Concomitant]
     Route: 048

REACTIONS (3)
  - ARTHRALGIA [None]
  - OEDEMA PERIPHERAL [None]
  - SYNOVITIS [None]
